FAERS Safety Report 9216982 (Version 2)
Quarter: 2013Q2

REPORT INFORMATION
  Report Type: Spontaneous
  Country: US (occurrence: None)
  Receive Date: 20130403
  Receipt Date: 20130418
  Transmission Date: 20140414
  Serious: Yes (Hospitalization)
  Sender: FDA-Public Use
  Company Number: CABO-13002436

PATIENT
  Age: 75 Year
  Sex: Male

DRUGS (7)
  1. COMETRIQ (CABOZANTINIB) CAPSULE [Suspect]
     Indication: THYROID CANCER
     Route: 048
     Dates: start: 20130228, end: 201303
  2. COLESTIPOL (COLESTIPOL) [Concomitant]
  3. SYNTHROID (LEVOTHYROXINE SODIUM) [Concomitant]
  4. LISINOPRIL (LISINOPRIL) [Concomitant]
  5. ONDANSETRON (ONDANSETRON) [Concomitant]
  6. CENTRUM (MINERALS NOS, VITAMINS NOS) [Concomitant]
  7. VITAMIN D NOS (VITAMIN D NOS) [Concomitant]

REACTIONS (13)
  - Throat tightness [None]
  - Vision blurred [None]
  - Eyelid retraction [None]
  - Dry throat [None]
  - Dysphonia [None]
  - Constipation [None]
  - Dry skin [None]
  - Stomatitis [None]
  - Dizziness [None]
  - Muscular weakness [None]
  - Oropharyngeal pain [None]
  - Skin fissures [None]
  - Drug intolerance [None]
